FAERS Safety Report 22243031 (Version 1)
Quarter: 2023Q2

REPORT INFORMATION
  Report Type: Spontaneous
  Country: US (occurrence: None)
  Receive Date: 20230420
  Receipt Date: 20230420
  Transmission Date: 20230722
  Serious: No
  Sender: FDA-Public Use
  Company Number: None

PATIENT
  Age: 72 Year
  Sex: Male
  Weight: 135.17 kg

DRUGS (17)
  1. FUROSEMIDE [Suspect]
     Active Substance: FUROSEMIDE
     Indication: Fluid retention
     Dosage: FREQUENCY : DAILY;?
     Route: 048
     Dates: start: 20230308, end: 20230315
  2. FUROSEMIDE [Suspect]
     Active Substance: FUROSEMIDE
     Indication: Hypertension
  3. INVOKANA [Concomitant]
     Active Substance: CANAGLIFLOZIN
  4. VALSARTAN [Concomitant]
     Active Substance: VALSARTAN
  5. ENTERIC ASPIRIN [Concomitant]
     Active Substance: ASPIRIN
  6. NIFEDIPINE [Concomitant]
     Active Substance: NIFEDIPINE
  7. TOPROL XL [Concomitant]
     Active Substance: METOPROLOL SUCCINATE
  8. NOVOLOG [Concomitant]
     Active Substance: INSULIN ASPART
  9. METFORMIN [Concomitant]
     Active Substance: METFORMIN HYDROCHLORIDE
  10. FLUTICASONE [Concomitant]
     Active Substance: FLUTICASONE
  11. LACTULOSE [Concomitant]
     Active Substance: LACTULOSE
  12. TOUJEO MAX [Concomitant]
     Active Substance: INSULIN GLARGINE
  13. TRULICITY [Concomitant]
     Active Substance: DULAGLUTIDE
  14. REPATHA [Concomitant]
     Active Substance: EVOLOCUMAB
  15. Chlorthlidone [Concomitant]
  16. VITAMINS [Concomitant]
     Active Substance: VITAMINS
  17. HERBALS\TURMERIC [Concomitant]
     Active Substance: HERBALS\TURMERIC

REACTIONS (2)
  - Abdominal pain [None]
  - Blood glucose increased [None]
